FAERS Safety Report 15951280 (Version 2)
Quarter: 2019Q1

REPORT INFORMATION
  Report Type: Spontaneous
  Country: US (occurrence: US)
  Receive Date: 20190212
  Receipt Date: 20190326
  Transmission Date: 20190417
  Serious: Yes (Other)
  Sender: FDA-Public Use
  Company Number: US-PFIZER INC-2019059584

PATIENT
  Age: 52 Year
  Sex: Male

DRUGS (28)
  1. VINCRISTINE SULFATE. [Suspect]
     Active Substance: VINCRISTINE SULFATE
     Dosage: 16 MG, CYCLIC
     Dates: start: 19810902
  2. ETOPOSIDE. [Suspect]
     Active Substance: ETOPOSIDE
     Indication: SMALL CELL LUNG CANCER
     Dosage: 60 MG/M2, DAILY, (FOR 5 DAYS)
  3. CYCLOPHOSPHAMIDE. [Suspect]
     Active Substance: CYCLOPHOSPHAMIDE
     Dosage: 750 MG/M2, CYCLIC,(MAINTENANCE CHEMOTHERAPY, ON DAY L OF EACH 3-WEEK CYCLE)
  4. CYCLOPHOSPHAMIDE. [Suspect]
     Active Substance: CYCLOPHOSPHAMIDE
     Dosage: 11854 MG, CYCLIC, (CUMULATIVE DRUG DOSAGE)
     Dates: start: 19810814
  5. VINCRISTINE SULFATE. [Suspect]
     Active Substance: VINCRISTINE SULFATE
     Dosage: 14 MG, CYCLIC
     Dates: start: 19810427
  6. ETOPOSIDE. [Suspect]
     Active Substance: ETOPOSIDE
     Dosage: 3782 MG, UNK (CUMULATIVE DRUG DOSAGE)
     Dates: start: 19810902
  7. DOXORUBICIN HCL [Suspect]
     Active Substance: DOXORUBICIN HYDROCHLORIDE
     Dosage: 50 MG/M2, CYCLIC (MAINTENANCE CHEMOTHERAPY, ON DAY L OF EACH 3-WEEK CYCLE)
  8. DOXORUBICIN HCL [Suspect]
     Active Substance: DOXORUBICIN HYDROCHLORIDE
     Dosage: 727 MG, CYCLIC
     Dates: start: 19810814
  9. ETOPOSIDE. [Suspect]
     Active Substance: ETOPOSIDE
     Dosage: 3782 MG, UNK CUMULATIVE DRUG DOSAGE)
     Dates: start: 19810814
  10. ETOPOSIDE. [Suspect]
     Active Substance: ETOPOSIDE
     Dosage: 3782 MG, UNK (CUMULATIVE DRUG DOSAGE)
     Dates: start: 19810925
  11. CYCLOPHOSPHAMIDE. [Suspect]
     Active Substance: CYCLOPHOSPHAMIDE
     Dosage: 8922 MG, CYCLIC (CUMULATIVE DRUG DOSAGE)
     Dates: start: 19810605
  12. CYCLOPHOSPHAMIDE. [Suspect]
     Active Substance: CYCLOPHOSPHAMIDE
     Dosage: 11854 MG, CYCLIC, (CUMULATIVE DRUG DOSAGE)
     Dates: start: 19810902
  13. DOXORUBICIN HCL [Suspect]
     Active Substance: DOXORUBICIN HYDROCHLORIDE
     Indication: SMALL CELL LUNG CANCER
     Dosage: 50 MG/M2, CYCLIC,(DAY1)
  14. CYCLOPHOSPHAMIDE. [Suspect]
     Active Substance: CYCLOPHOSPHAMIDE
     Indication: SMALL CELL LUNG CANCER
     Dosage: 1000 MG/M2, CYCLIC, (DAY 1)
  15. ETOPOSIDE. [Suspect]
     Active Substance: ETOPOSIDE
     Dosage: 2806 MG, UNK CUMULATIVE DRUG DOSAGE)
     Dates: start: 19810605
  16. CYCLOPHOSPHAMIDE. [Suspect]
     Active Substance: CYCLOPHOSPHAMIDE
     Dosage: 11854 MG, CYCLIC,  (CUMULATIVE DRUG DOSAGE)
     Dates: start: 19810925
  17. VINCRISTINE SULFATE. [Suspect]
     Active Substance: VINCRISTINE SULFATE
     Dosage: 1.5 MG/M2, CYCLIC,(ON DAY 1 OF EACH 3-WEEK CYCLE)
  18. DOXORUBICIN HCL [Suspect]
     Active Substance: DOXORUBICIN HYDROCHLORIDE
     Dosage: 437 MG, CYCLIC
     Dates: start: 19810427
  19. DOXORUBICIN HCL [Suspect]
     Active Substance: DOXORUBICIN HYDROCHLORIDE
     Dosage: 727 MG, CYCLIC
     Dates: start: 19810902
  20. DOXORUBICIN HCL [Suspect]
     Active Substance: DOXORUBICIN HYDROCHLORIDE
     Dosage: 727 MG, CYCLIC
     Dates: start: 19810925
  21. ETOPOSIDE. [Suspect]
     Active Substance: ETOPOSIDE
     Dosage: 250 MG/M2, CYCLIC, (ON DAY 1 OF EACH 3-WEEK CYCLE)
  22. VINCRISTINE SULFATE. [Suspect]
     Active Substance: VINCRISTINE SULFATE
     Dosage: 16 MG/M2, CYCLIC,
     Dates: start: 19810605
  23. VINCRISTINE SULFATE. [Suspect]
     Active Substance: VINCRISTINE SULFATE
     Dosage: 16 MG, CYCLIC
     Dates: start: 19810925
  24. DOXORUBICIN HCL [Suspect]
     Active Substance: DOXORUBICIN HYDROCHLORIDE
     Dosage: 521 MG, CYCLIC
     Dates: start: 19810605
  25. ETOPOSIDE. [Suspect]
     Active Substance: ETOPOSIDE
     Dosage: 2328 MG, UNK (CUMULATIVE DRUG DOSAGE)
     Dates: start: 19810427
  26. VINCRISTINE SULFATE. [Suspect]
     Active Substance: VINCRISTINE SULFATE
     Indication: SMALL CELL LUNG CANCER
     Dosage: 1.5 MG/M2, CYCLIC,(DAY1)
  27. VINCRISTINE SULFATE. [Suspect]
     Active Substance: VINCRISTINE SULFATE
     Dosage: 16 MG, CYCLIC
     Dates: start: 19810814
  28. CYCLOPHOSPHAMIDE. [Suspect]
     Active Substance: CYCLOPHOSPHAMIDE
     Dosage: 8207 MG, CYCLIC (CUMULATIVE DRUG DOSAGE)
     Dates: start: 19810427

REACTIONS (2)
  - Second primary malignancy [Unknown]
  - Acute leukaemia [Unknown]
